FAERS Safety Report 9186647 (Version 4)
Quarter: 2021Q3

REPORT INFORMATION
  Report Type: Report from Study
  Country: GB (occurrence: GB)
  Receive Date: 20130325
  Receipt Date: 20210705
  Transmission Date: 20211014
  Serious: Yes (Hospitalization, Other)
  Sender: FDA-Public Use
  Company Number: GB-SHIRE-SPV1-2011-00481

PATIENT
  Age: 52 Year
  Sex: Female
  Weight: 57 kg

DRUGS (2)
  1. ICATIBANT [Suspect]
     Active Substance: ICATIBANT ACETATE
     Indication: ANGIOEDEMA
     Dosage: 30 MG, UNKNOWN
     Route: 058
  2. ICATIBANT [Suspect]
     Active Substance: ICATIBANT ACETATE
     Indication: ANGIOEDEMA
     Dosage: 30 MG, UNKNOWN
     Route: 058

REACTIONS (5)
  - Gastrointestinal stoma complication [Not Recovered/Not Resolved]
  - Angioedema [Recovered/Resolved]
  - Intervertebral disc protrusion [Recovered/Resolved]
  - Product use in unapproved indication [Unknown]
  - Abdominal hernia [Unknown]

NARRATIVE: CASE EVENT DATE: 20100701
